FAERS Safety Report 7176604-2 (Version None)
Quarter: 2010Q4

REPORT INFORMATION
  Report Type: 
  Country: None (occurrence: None)
  Receive Date: 20101220
  Receipt Date: 20101206
  Transmission Date: 20110411
  Serious: Yes (Other)
  Sender: FDA-Public Use
  Company Number: PHHY2010CA82975

PATIENT
  Sex: Male

DRUGS (7)
  1. CLOZARIL [Suspect]
     Indication: SCHIZOPHRENIA
     Dosage: 300 MG
     Route: 048
     Dates: start: 20100708, end: 20101201
  2. RISPERDAL [Concomitant]
     Dosage: 25 MG
  3. HALDOL [Concomitant]
     Dosage: 10 MG, BID, PRN
     Route: 048
  4. ATIVAN [Concomitant]
     Dosage: 4 MG, BID, PRN
     Route: 048
  5. COGENTIN [Concomitant]
     Dosage: 2 MG, QD
  6. IBUPROFEN [Concomitant]
     Dosage: 400 MG, TID, PRN
  7. BENYLIN [Concomitant]
     Dosage: 10 MG, QID, PRN

REACTIONS (3)
  - ANTIPSYCHOTIC DRUG LEVEL INCREASED [None]
  - INFLUENZA LIKE ILLNESS [None]
  - WHITE BLOOD CELL DISORDER [None]
